FAERS Safety Report 12705076 (Version 1)
Quarter: 2016Q3

REPORT INFORMATION
  Report Type: Spontaneous
  Country: US (occurrence: None)
  Receive Date: 20160831
  Receipt Date: 20160831
  Transmission Date: 20161109
  Serious: No
  Sender: FDA-Public Use
  Company Number: None

PATIENT
  Age: 44 Year
  Sex: Female

DRUGS (3)
  1. ERYTHROMYCIN. [Suspect]
     Active Substance: ERYTHROMYCIN
     Indication: ROSACEA
     Route: 048
     Dates: start: 20140424, end: 20160811
  2. ERYTHROMYCIN. [Suspect]
     Active Substance: ERYTHROMYCIN
     Indication: ACNE
     Route: 048
     Dates: start: 20140424, end: 20160811
  3. CELEXA [Concomitant]
     Active Substance: CITALOPRAM HYDROBROMIDE

REACTIONS (5)
  - Chest pain [None]
  - Electrocardiogram QT prolonged [None]
  - Hypersomnia [None]
  - Surgery [None]
  - Fatigue [None]

NARRATIVE: CASE EVENT DATE: 20160810
